FAERS Safety Report 5258228-7 (Version None)
Quarter: 2007Q1

REPORT INFORMATION
  Report Type: 
  Country: None (occurrence: None)
  Receive Date: 20070302
  Receipt Date: 20070219
  Transmission Date: 20070707
  Serious: No
  Sender: FDA-Public Use
  Company Number: 2007-154756-NL

PATIENT
  Age: 43 Year
  Sex: Female

DRUGS (1)
  1. MIRTAZAPINE [Suspect]
     Indication: DEPRESSION
     Dosage: 15 MG ORAL
     Route: 048
     Dates: start: 20070105, end: 20070111

REACTIONS (3)
  - AKATHISIA [None]
  - LIP SWELLING [None]
  - SWOLLEN TONGUE [None]
